FAERS Safety Report 9900305 (Version 2)
Quarter: 2014Q1

REPORT INFORMATION
  Report Type: Spontaneous
  Country: US (occurrence: US)
  Receive Date: 20140216
  Receipt Date: 20140219
  Transmission Date: 20141002
  Serious: No
  Sender: FDA-Public Use
  Company Number: US-009507513-1402USA006855

PATIENT
  Sex: Male

DRUGS (2)
  1. JANUMET [Suspect]
     Indication: BLOOD GLUCOSE DECREASED
     Dosage: UNK
     Route: 048
  2. JANUMET [Suspect]
     Indication: BLOOD GLUCOSE INCREASED

REACTIONS (1)
  - Vision blurred [Recovered/Resolved]
